FAERS Safety Report 9778044 (Version 1)
Quarter: 2013Q4

REPORT INFORMATION
  Report Type: Spontaneous
  Country: US (occurrence: US)
  Receive Date: 20131223
  Receipt Date: 20131223
  Transmission Date: 20140711
  Serious: Yes (Hospitalization)
  Sender: FDA-Public Use
  Company Number: US-ROCHE-1323968

PATIENT
  Age: 33 Year
  Sex: Female

DRUGS (2)
  1. XOLAIR [Suspect]
     Indication: ASTHMA
     Dosage: MOST RECENT DOSE OF OMALIZUMAB WAS ON 05/DEC/2013.
     Route: 058
  2. XOLAIR [Suspect]
     Route: 058

REACTIONS (2)
  - Anaphylactic reaction [Not Recovered/Not Resolved]
  - Pruritus [Unknown]
